FAERS Safety Report 18938072 (Version 1)
Quarter: 2021Q1

REPORT INFORMATION
  Report Type: Spontaneous
  Country: CA (occurrence: CA)
  Receive Date: 20210224
  Receipt Date: 20210224
  Transmission Date: 20210420
  Serious: Yes (Life-Threatening, Other)
  Sender: FDA-Public Use
  Company Number: CA-PFIZER INC-2021181990

PATIENT
  Age: 9 Year
  Sex: Male
  Weight: 32 kg

DRUGS (24)
  1. DIPHENHYDRAMINE. [Concomitant]
     Active Substance: DIPHENHYDRAMINE
     Dosage: UNK
  2. MAGNESIUM [Concomitant]
     Active Substance: MAGNESIUM
     Dosage: UNK
  3. MYCAMINE [Concomitant]
     Active Substance: MICAFUNGIN SODIUM
     Dosage: UNK
     Route: 042
  4. TACROLIMUS. [Concomitant]
     Active Substance: TACROLIMUS
     Dosage: UNK
  5. METHOTREXATE SODIUM. [Suspect]
     Active Substance: METHOTREXATE SODIUM
     Indication: BURKITT^S LYMPHOMA
     Dosage: 3.4 G
     Route: 042
  6. ALTEPLASE. [Concomitant]
     Active Substance: ALTEPLASE
     Dosage: UNK
     Route: 042
  7. BETAMETHASONE. [Concomitant]
     Active Substance: BETAMETHASONE
     Dosage: UNK
     Route: 061
  8. FLUCONAZOLE. [Concomitant]
     Active Substance: FLUCONAZOLE
     Dosage: UNK
  9. FISH OIL [Concomitant]
     Active Substance: FISH OIL
     Dosage: UNK
  10. LEUCOVORIN [FOLINIC ACID] [Concomitant]
     Active Substance: LEUCOVORIN
     Dosage: UNK
  11. ONDANSETRON [Concomitant]
     Active Substance: ONDANSETRON
     Dosage: UNK
  12. POLYETHYLENE GLYCOL [MACROGOL] [Concomitant]
     Active Substance: POLYETHYLENE GLYCOLS
     Dosage: UNK
  13. VALACYCLOVIR [Concomitant]
     Active Substance: VALACYCLOVIR HYDROCHLORIDE
     Dosage: UNK
  14. AMLODIPINE [Concomitant]
     Active Substance: AMLODIPINE BESYLATE
     Dosage: UNK
  15. PIPERACILLIN AND TAZOBACTAM [Concomitant]
     Active Substance: PIPERACILLIN SODIUM\TAZOBACTAM SODIUM
     Dosage: UNK
  16. FILGRASTIM [Concomitant]
     Active Substance: FILGRASTIM
     Dosage: UNK
  17. FLUTICASONE. [Concomitant]
     Active Substance: FLUTICASONE
     Dosage: UNK
  18. SODIUM PICOSULFATE [Concomitant]
     Active Substance: SODIUM PICOSULFATE
     Dosage: UNK
  19. RITUXAN [Suspect]
     Active Substance: RITUXIMAB
     Indication: BURKITT^S LYMPHOMA
     Dosage: 430 MG ONCE
     Route: 042
  20. HYDROCORTISONE. [Concomitant]
     Active Substance: HYDROCORTISONE
     Dosage: UNK
  21. CYTARABINE. [Suspect]
     Active Substance: CYTARABINE
     Indication: BURKITT^S LYMPHOMA
     Dosage: 115 MG
     Route: 042
  22. BISACODYL. [Concomitant]
     Active Substance: BISACODYL
     Dosage: UNK
  23. PENTAMIDINE [Concomitant]
     Active Substance: PENTAMIDINE
     Dosage: UNK, INJ 300MG/VIAL BP
  24. POTASSIUM [Concomitant]
     Active Substance: POTASSIUM
     Dosage: UNK
     Route: 042

REACTIONS (4)
  - Febrile neutropenia [Recovered/Resolved]
  - Rectal haemorrhage [Recovered/Resolved]
  - Diarrhoea [Recovered/Resolved]
  - Body temperature fluctuation [Recovered/Resolved]
